FAERS Safety Report 9313316 (Version 1)
Quarter: 2013Q2

REPORT INFORMATION
  Report Type: Spontaneous
  Country: US (occurrence: US)
  Receive Date: 20130528
  Receipt Date: 20130528
  Transmission Date: 20140414
  Serious: No
  Sender: FDA-Public Use
  Company Number: US-ABBOTT-13P-163-1061759-00

PATIENT
  Age: 70 Year
  Sex: Male
  Weight: 86.26 kg

DRUGS (10)
  1. ANDROGEL [Suspect]
     Indication: BLOOD TESTOSTERONE DECREASED
     Dosage: 1 PUMP, STARTED 5 WEEKS AGO
     Route: 061
     Dates: start: 201302
  2. ANDROGEL [Suspect]
     Dosage: 2 PUMPS
     Route: 061
  3. LIPITOR [Concomitant]
     Indication: BLOOD CHOLESTEROL INCREASED
  4. ALLOPURINOL [Concomitant]
     Indication: GOUT
  5. DIOVAN [Concomitant]
     Indication: CARDIAC DISORDER
  6. LEVOTHYROXINE [Concomitant]
     Indication: HYPOTHYROIDISM
     Route: 048
  7. FLOMAX [Concomitant]
     Indication: PRODUCT USED FOR UNKNOWN INDICATION
  8. NEXIUM [Concomitant]
     Indication: PRODUCT USED FOR UNKNOWN INDICATION
  9. PLAVIX [Concomitant]
     Indication: PRODUCT USED FOR UNKNOWN INDICATION
  10. OCUVITE [Concomitant]
     Indication: SUPPLEMENTATION THERAPY

REACTIONS (6)
  - Erectile dysfunction [Not Recovered/Not Resolved]
  - Libido disorder [Not Recovered/Not Resolved]
  - Intentional drug misuse [Recovered/Resolved]
  - Drug ineffective [Not Recovered/Not Resolved]
  - Rash papular [Not Recovered/Not Resolved]
  - Rash papular [Not Recovered/Not Resolved]
